FAERS Safety Report 9260728 (Version 1)
Quarter: 2013Q2

REPORT INFORMATION
  Report Type: Spontaneous
  Country: US (occurrence: US)
  Receive Date: 20130429
  Receipt Date: 20130429
  Transmission Date: 20140414
  Serious: Yes (Other)
  Sender: FDA-Public Use
  Company Number: US-ELI_LILLY_AND_COMPANY-US201304004366

PATIENT
  Sex: Female
  Weight: 126.8 kg

DRUGS (10)
  1. CYMBALTA [Suspect]
     Indication: DEPRESSION
     Dosage: 60 MG, QD
  2. LYRICA [Concomitant]
     Indication: NEURALGIA
     Dosage: 75 MG, BID
     Route: 048
     Dates: start: 200807, end: 201010
  3. NEXIUM [Concomitant]
  4. LASIX [Concomitant]
  5. POTASSIUM [Concomitant]
  6. HYDROCODONE [Concomitant]
  7. ALPRAZOLAM [Concomitant]
  8. OXYCODONE [Concomitant]
  9. INSULIN GLARGINE [Concomitant]
  10. PREDNISONE [Concomitant]

REACTIONS (10)
  - Coma [Unknown]
  - Drug interaction [Unknown]
  - Diabetic foot infection [Unknown]
  - White blood cell count increased [Unknown]
  - Pain in extremity [Unknown]
  - Hypoaesthesia [Unknown]
  - Local swelling [Unknown]
  - Muscle spasms [Unknown]
  - Dysgraphia [Unknown]
  - Drug ineffective [Unknown]
